FAERS Safety Report 9361716 (Version 1)
Quarter: 2013Q2

REPORT INFORMATION
  Report Type: Spontaneous
  Country: US (occurrence: US)
  Receive Date: 20130621
  Receipt Date: 20130621
  Transmission Date: 20140414
  Serious: No
  Sender: FDA-Public Use
  Company Number: US-BAYER-2013-076881

PATIENT
  Sex: Male

DRUGS (2)
  1. ALEVE CAPLET [Suspect]
     Dosage: 3 DF, AT NIGHT
     Route: 048
  2. ALEVE CAPLET [Suspect]
     Dosage: 3 DF, AT MORNING
     Route: 048

REACTIONS (1)
  - Incorrect dose administered [None]
